FAERS Safety Report 5879592-1 (Version None)
Quarter: 2008Q3

REPORT INFORMATION
  Report Type: 
  Country: None (occurrence: None)
  Receive Date: 20080912
  Receipt Date: 20080904
  Transmission Date: 20090109
  Serious: Yes (Hospitalization)
  Sender: FDA-Public Use
  Company Number: BE-AVENTIS-200818413GDDC

PATIENT
  Age: 41 Year
  Sex: Male

DRUGS (3)
  1. TAVANIC [Suspect]
     Indication: GASTROINTESTINAL INFECTION
     Dates: start: 20080804, end: 20080814
  2. FLAGYL [Suspect]
     Indication: GASTROINTESTINAL INFECTION
     Dates: start: 20080804, end: 20080814
  3. IMMUNOSUPPRESSIVE AGENTS [Concomitant]

REACTIONS (4)
  - DERMATITIS BULLOUS [None]
  - GLOSSITIS [None]
  - SKIN ULCER [None]
  - STOMATITIS [None]
